FAERS Safety Report 12422182 (Version 1)
Quarter: 2016Q2

REPORT INFORMATION
  Report Type: Spontaneous
  Country: US (occurrence: US)
  Receive Date: 20160601
  Receipt Date: 20160601
  Transmission Date: 20160815
  Serious: Yes (Other)
  Sender: FDA-Public Use
  Company Number: PHHY2016US074143

PATIENT

DRUGS (2)
  1. EPLERENONE. [Suspect]
     Active Substance: EPLERENONE
     Dosage: 50 MG, QD
     Route: 065
  2. EPLERENONE. [Suspect]
     Active Substance: EPLERENONE
     Indication: CHORIORETINOPATHY
     Dosage: 25 MG, QD
     Route: 065

REACTIONS (2)
  - Chorioretinopathy [Unknown]
  - Condition aggravated [Unknown]
